FAERS Safety Report 8952944 (Version 1)
Quarter: 2012Q4

REPORT INFORMATION
  Report Type: 
  Country: DK (occurrence: DK)
  Receive Date: 20121203
  Receipt Date: 20121203
  Transmission Date: 20130627
  Serious: Yes (Hospitalization)
  Sender: FDA-Public Use
  Company Number: DK-AMGEN-DNKSP2012071301

PATIENT
  Age: 70 Year
  Sex: Female

DRUGS (3)
  1. XGEVA [Suspect]
     Indication: HYPERCALCAEMIA
     Dosage: 120 mg, one time dose
     Route: 058
     Dates: start: 20121018, end: 20121029
  2. ZOMETA [Concomitant]
     Indication: CALCIUM IONISED INCREASED
     Dosage: UNK UNK, q6wk
  3. BISPHOSPHONATES [Concomitant]
     Dosage: UNK

REACTIONS (2)
  - Hypercalcaemia [Recovered/Resolved]
  - Blood parathyroid hormone decreased [Unknown]
